FAERS Safety Report 5017238-5 (Version None)
Quarter: 2006Q2

REPORT INFORMATION
  Report Type: 
  Country: None (occurrence: None)
  Receive Date: 20060414
  Receipt Date: 20060303
  Transmission Date: 20061013
  Serious: No
  Sender: FDA-Public Use
  Company Number: 2006SP001065

PATIENT
  Age: 80 Year
  Sex: Male
  Weight: 70.3075 kg

DRUGS (3)
  1. LUNESTA [Suspect]
     Indication: INSOMNIA
     Dosage: 2 MG;ORAL
     Route: 048
     Dates: start: 20050801, end: 20050801
  2. LEVOTHROID [Concomitant]
  3. ZOCOR [Concomitant]

REACTIONS (1)
  - DYSGEUSIA [None]
